FAERS Safety Report 4467998-7 (Version None)
Quarter: 2004Q4

REPORT INFORMATION
  Report Type: 
  Country: None (occurrence: None)
  Receive Date: 20041007
  Receipt Date: 20040929
  Transmission Date: 20050328
  Serious: Yes (Death, Hospitalization)
  Sender: FDA-Public Use
  Company Number: FR-BRISTOL-MYERS SQUIBB COMPANY-12720298

PATIENT
  Age: 73 Year
  Sex: Male
  Weight: 160 kg

DRUGS (8)
  1. GLUCOPHAGE [Suspect]
     Indication: DIABETES MELLITUS NON-INSULIN-DEPENDENT
     Route: 048
     Dates: end: 20040824
  2. PREVISCAN [Suspect]
     Route: 048
     Dates: start: 20040723, end: 20040824
  3. ZESTRIL [Suspect]
     Route: 048
     Dates: end: 20040824
  4. BURINEX [Suspect]
     Route: 048
  5. DIGOXIN [Suspect]
  6. JOSIR [Concomitant]
  7. ATARAX [Concomitant]
  8. DIFFU-K [Concomitant]

REACTIONS (2)
  - COMA [None]
  - RENAL FAILURE ACUTE [None]
